FAERS Safety Report 9746377 (Version 1)
Quarter: 2013Q4

REPORT INFORMATION
  Report Type: Spontaneous
  Country: PE (occurrence: PE)
  Receive Date: 20131211
  Receipt Date: 20131211
  Transmission Date: 20140711
  Serious: Yes (Death)
  Sender: FDA-Public Use
  Company Number: PE-GLAXOSMITHKLINE-A1052186A

PATIENT
  Sex: Female

DRUGS (1)
  1. SERETIDE [Suspect]
     Indication: BRONCHIECTASIS
     Dosage: 2PUFF PER DAY
     Dates: start: 20111019

REACTIONS (1)
  - Pulmonary fibrosis [Fatal]
